FAERS Safety Report 7237948-9 (Version None)
Quarter: 2011Q1

REPORT INFORMATION
  Report Type: 
  Country: None (occurrence: None)
  Receive Date: 20110121
  Receipt Date: 20110118
  Transmission Date: 20110831
  Serious: Yes (Death)
  Sender: FDA-Public Use
  Company Number: GR-PFIZER INC-2011005488

PATIENT
  Age: 60 Year
  Sex: Male
  Weight: 75 kg

DRUGS (5)
  1. DALACIN [Suspect]
     Dosage: 600 MG, 3X/DAY
     Route: 042
     Dates: start: 20090723, end: 20090728
  2. MEROPENEM [Suspect]
     Indication: ABDOMINAL INFECTION
     Dosage: 1G, 3X/DAY
     Route: 042
     Dates: start: 20090725, end: 20090729
  3. PRILOSEC [Concomitant]
     Indication: PROPHYLAXIS
     Dosage: UNK
     Route: 042
     Dates: start: 20090713, end: 20090729
  4. INVANZ [Suspect]
     Indication: ABDOMINAL INFECTION
     Dosage: 1G, 1X/DAY
     Route: 042
     Dates: start: 20090722, end: 20090724
  5. BRIKLIN [Concomitant]
     Indication: PROPHYLAXIS
     Dosage: UNK
     Route: 042
     Dates: start: 20090713, end: 20090726

REACTIONS (1)
  - LARGE INTESTINE PERFORATION [None]
